FAERS Safety Report 4366110-2 (Version None)
Quarter: 2004Q2

REPORT INFORMATION
  Report Type: 
  Country: None (occurrence: None)
  Receive Date: 20040524
  Receipt Date: 20040212
  Transmission Date: 20050107
  Serious: No
  Sender: FDA-Public Use
  Company Number: SU-2004-002145

PATIENT
  Age: 76 Year
  Sex: Male
  Weight: 95.709 kg

DRUGS (7)
  1. BENICAR [Suspect]
     Indication: HYPERTENSION
     Dosage: 20 MG QD PO
     Route: 048
     Dates: start: 20030826, end: 20031003
  2. ASPIRIN [Concomitant]
  3. PRAVACHOL [Concomitant]
  4. ATENOLOL [Concomitant]
  5. FOSAMAX [Concomitant]
  6. MULTI-VITAMINS [Concomitant]
  7. VITAMIN B-12 [Concomitant]

REACTIONS (2)
  - PHOTOPSIA [None]
  - PHOTOSENSITIVITY REACTION [None]
